FAERS Safety Report 4988718-3 (Version None)
Quarter: 2006Q2

REPORT INFORMATION
  Report Type: 
  Country: None (occurrence: None)
  Receive Date: 20060502
  Receipt Date: 20051025
  Transmission Date: 20061013
  Serious: Yes (Hospitalization)
  Sender: FDA-Public Use
  Company Number: US-MERCK-0510USA09184

PATIENT
  Age: 49 Year
  Sex: Female
  Weight: 70 kg

DRUGS (11)
  1. VIOXX [Suspect]
     Indication: ARTHRITIS
     Route: 048
     Dates: start: 20010101, end: 20030401
  2. ZOCOR [Concomitant]
     Route: 065
     Dates: start: 20010801, end: 20050901
  3. ASPIRIN [Concomitant]
     Route: 065
     Dates: start: 20020601, end: 20050701
  4. METOPROLOL TARTRATE [Concomitant]
     Route: 065
     Dates: start: 20010701, end: 20050701
  5. ACETAMINOPHEN AND CARISOPRODOL AND PHENYLBUTAZONE [Concomitant]
     Route: 065
     Dates: start: 20020601, end: 20050601
  6. HYDROCODONE BITARTRATE [Concomitant]
     Route: 065
     Dates: start: 19990901, end: 20050901
  7. ALPRAZOLAM [Concomitant]
     Route: 065
  8. PRILOSEC [Concomitant]
     Route: 065
  9. ULTRACET [Concomitant]
     Route: 065
  10. ACETAMINOPHEN [Concomitant]
     Route: 065
     Dates: start: 20010701, end: 20041201
  11. LORCET-HD [Concomitant]
     Route: 065
     Dates: start: 20010501, end: 20010601

REACTIONS (11)
  - BUNDLE BRANCH BLOCK RIGHT [None]
  - CORONARY ARTERY STENOSIS [None]
  - CYST [None]
  - DILATATION ATRIAL [None]
  - HAEMORRHOIDS [None]
  - MITRAL VALVE INCOMPETENCE [None]
  - MYOCARDIAL INFARCTION [None]
  - PULMONARY VALVE INCOMPETENCE [None]
  - THYROID DISORDER [None]
  - TRICUSPID VALVE INCOMPETENCE [None]
  - VENTRICULAR DYSFUNCTION [None]
